FAERS Safety Report 8861587 (Version 1)
Quarter: 2012Q4

REPORT INFORMATION
  Report Type: 
  Country: US (occurrence: US)
  Receive Date: 20121025
  Receipt Date: 20121025
  Transmission Date: 20130627
  Serious: No
  Sender: FDA-Public Use
  Company Number: US-AMGEN-USASP2012017525

PATIENT
  Age: 50 Year
  Sex: Female

DRUGS (5)
  1. ENBREL [Suspect]
     Indication: PRODUCT USED FOR UNKNOWN INDICATION
     Dosage: 50 mg, qwk
  2. MULTIVITAMIN                       /00097801/ [Concomitant]
  3. TRIAMTEREEN/HYDROCHLOOTTHIAZIDE [Concomitant]
  4. ECOTRIN [Concomitant]
     Dosage: 325 mg, UNK
  5. FISH OIL [Concomitant]
     Dosage: 1000 mg, UNK

REACTIONS (3)
  - Injection site swelling [Unknown]
  - Injection site pruritus [Unknown]
  - Injection site pain [Unknown]
